FAERS Safety Report 6510355-X (Version None)
Quarter: 2009Q4

REPORT INFORMATION
  Report Type: 
  Country: None (occurrence: None)
  Receive Date: 20091222
  Receipt Date: 20090925
  Transmission Date: 20100525
  Serious: Yes (Hospitalization)
  Sender: FDA-Public Use
  Company Number: US-ASTRAZENECA-2009SE16005

PATIENT
  Age: 69 Year
  Sex: Male

DRUGS (4)
  1. CRESTOR [Suspect]
  2. PAXIL [Concomitant]
  3. VESICARE [Concomitant]
  4. BENODRYL [Concomitant]

REACTIONS (1)
  - RHABDOMYOLYSIS [None]
